FAERS Safety Report 25071154 (Version 1)
Quarter: 2025Q1

REPORT INFORMATION
  Report Type: Spontaneous
  Country: US (occurrence: US)
  Receive Date: 20250312
  Receipt Date: 20250312
  Transmission Date: 20250409
  Serious: No
  Sender: MERCK SHARP & DOHME LLC
  Company Number: US-009507513-2262790

PATIENT
  Age: 78 Year
  Sex: Female

DRUGS (1)
  1. ERTAPENEM [Suspect]
     Active Substance: ERTAPENEM
     Indication: Intervertebral discitis

REACTIONS (1)
  - Product use issue [Unknown]
